FAERS Safety Report 4341547-6 (Version None)
Quarter: 2004Q2

REPORT INFORMATION
  Report Type: 
  Country: None (occurrence: None)
  Receive Date: 20040415
  Receipt Date: 20040401
  Transmission Date: 20050107
  Serious: Yes (Hospitalization)
  Sender: FDA-Public Use
  Company Number: S04-USA-01560-01

PATIENT
  Age: 90 Year
  Sex: Female

DRUGS (12)
  1. NAMENDA [Suspect]
     Indication: DEMENTIA ALZHEIMER'S TYPE
     Dosage: 5 MG QD PO
     Route: 048
     Dates: start: 20040225, end: 20040302
  2. NAMENDA [Suspect]
     Indication: DEMENTIA ALZHEIMER'S TYPE
     Dosage: 10 MG QD PO
     Route: 048
     Dates: start: 20040303, end: 20040309
  3. NAMENDA [Suspect]
     Indication: DEMENTIA ALZHEIMER'S TYPE
     Dosage: 15 MG QD PO
     Route: 048
     Dates: start: 20040310, end: 20040316
  4. NAMENDA [Suspect]
     Indication: DEMENTIA ALZHEIMER'S TYPE
     Dosage: 10 MG BID PO
     Route: 048
     Dates: start: 20040317, end: 20040322
  5. REMINYL [Concomitant]
  6. LASIX [Concomitant]
  7. SYNTHROID [Concomitant]
  8. NORVASC [Concomitant]
  9. TYLENOL [Concomitant]
  10. DIOVAN [Concomitant]
  11. POTASSIUM [Concomitant]
  12. METAGLIP [Concomitant]

REACTIONS (6)
  - BLOOD GLUCOSE FLUCTUATION [None]
  - COMA [None]
  - CONFUSIONAL STATE [None]
  - CYSTITIS [None]
  - DEHYDRATION [None]
  - LETHARGY [None]
